FAERS Safety Report 25106949 (Version 2)
Quarter: 2025Q2

REPORT INFORMATION
  Report Type: Spontaneous
  Country: JP (occurrence: JP)
  Receive Date: 20250321
  Receipt Date: 20250411
  Transmission Date: 20250717
  Serious: Yes (Other)
  Sender: SUNOVION
  Company Number: JP-DSPHARMA-2025SMP002210

PATIENT

DRUGS (3)
  1. LATUDA [Suspect]
     Active Substance: LURASIDONE HYDROCHLORIDE
     Indication: Schizophrenia
     Dosage: 80 MG, QD
     Route: 048
  2. RISPERDAL [Suspect]
     Active Substance: RISPERIDONE
     Indication: Product used for unknown indication
     Dosage: 4 MG, QD
     Route: 065
  3. RISPERDAL [Suspect]
     Active Substance: RISPERIDONE
     Dosage: 2 MG, QD
     Route: 065

REACTIONS (1)
  - Hallucination [Recovered/Resolved]
